FAERS Safety Report 6461081-7 (Version None)
Quarter: 2009Q4

REPORT INFORMATION
  Report Type: 
  Country: None (occurrence: None)
  Receive Date: 20091130
  Receipt Date: 20091119
  Transmission Date: 20100525
  Serious: Yes (Other)
  Sender: FDA-Public Use
  Company Number: B0607350A

PATIENT
  Sex: Female

DRUGS (2)
  1. VALTREX [Suspect]
     Indication: HERPES SIMPLEX
     Dosage: 500MG PER DAY
     Route: 048
     Dates: start: 20091028, end: 20091029
  2. RIVOTRIL [Concomitant]
     Indication: INSOMNIA
     Dosage: .5MG PER DAY
     Route: 048
     Dates: start: 20071228

REACTIONS (2)
  - CONFUSIONAL STATE [None]
  - DELIRIUM [None]
